FAERS Safety Report 14406447 (Version 1)
Quarter: 2018Q1

REPORT INFORMATION
  Report Type: Spontaneous
  Country: CZ (occurrence: CZ)
  Receive Date: 20180118
  Receipt Date: 20180118
  Transmission Date: 20180509
  Serious: Yes (Life-Threatening, Hospitalization, Other)
  Sender: FDA-Public Use
  Company Number: CZ-MYLANLABS-2018M1002698

PATIENT
  Age: 51 Year
  Sex: Female

DRUGS (16)
  1. SUFENTANIL [Suspect]
     Active Substance: SUFENTANIL
     Indication: SEDATIVE THERAPY
     Dosage: 10 MICROG/H
     Route: 065
  2. INDOMETHACIN                       /00003801/ [Concomitant]
     Active Substance: INDOMETHACIN
     Indication: PRODUCT USED FOR UNKNOWN INDICATION
     Route: 065
  3. IVABRADINE [Concomitant]
     Active Substance: IVABRADINE
     Indication: SINUS TACHYCARDIA
     Dosage: 10 MG/DAY
     Route: 065
  4. LEVOFLOXACIN. [Suspect]
     Active Substance: LEVOFLOXACIN
     Indication: ANTIBIOTIC THERAPY
     Dosage: UNK
     Route: 065
  5. PAROXETINE. [Suspect]
     Active Substance: PAROXETINE
     Indication: PRODUCT USED FOR UNKNOWN INDICATION
     Dosage: 60 MG/DAY
     Route: 065
  6. TRAZODONE [Suspect]
     Active Substance: TRAZODONE HYDROCHLORIDE
     Indication: PRODUCT USED FOR UNKNOWN INDICATION
     Dosage: 300 MG/DAY
     Route: 065
  7. MELOXICAM. [Concomitant]
     Active Substance: MELOXICAM
     Indication: PRODUCT USED FOR UNKNOWN INDICATION
     Dosage: UNK
     Route: 065
  8. BROMAZEPAM [Concomitant]
     Active Substance: BROMAZEPAM
     Indication: PRODUCT USED FOR UNKNOWN INDICATION
     Dosage: 2 MG/DAY
     Route: 065
  9. PIPERACILLIN/TAZOBACTAM [Concomitant]
     Active Substance: PIPERACILLIN SODIUM\TAZOBACTAM SODIUM
     Indication: ANTIBIOTIC THERAPY
     Route: 065
  10. VORICONAZOLE. [Concomitant]
     Active Substance: VORICONAZOLE
     Indication: CANDIDA INFECTION
     Dosage: UNK
     Route: 065
  11. METOCLOPRAMIDE. [Suspect]
     Active Substance: METOCLOPRAMIDE
     Indication: PRODUCT USED FOR UNKNOWN INDICATION
     Dosage: UNK
     Route: 065
  12. CHLORPROTHIXEN                     /00012102/ [Concomitant]
     Active Substance: CHLORPROTHIXENE HYDROCHLORIDE
     Indication: PRODUCT USED FOR UNKNOWN INDICATION
     Dosage: 50 MG/DAY
     Route: 065
  13. MIDAZOLAM [Concomitant]
     Active Substance: MIDAZOLAM HYDROCHLORIDE
     Indication: SEDATIVE THERAPY
     Dosage: 10-15 MG/H
     Route: 065
  14. NACL [Concomitant]
     Active Substance: SODIUM CHLORIDE
     Indication: BRAIN OEDEMA
     Dosage: UNK
     Route: 065
  15. TRAMADOL. [Concomitant]
     Active Substance: TRAMADOL
     Indication: PRODUCT USED FOR UNKNOWN INDICATION
     Dosage: UNK
     Route: 065
  16. BUDESONIDE W/FORMOTEROL [Concomitant]
     Active Substance: BUDESONIDE\FORMOTEROL
     Indication: ASTHMA
     Dosage: 160/4.5 MG
     Route: 055

REACTIONS (3)
  - Serotonin syndrome [Recovering/Resolving]
  - Metabolic acidosis [Recovered/Resolved]
  - Rhabdomyolysis [Recovering/Resolving]
